FAERS Safety Report 8490063-9 (Version None)
Quarter: 2012Q3

REPORT INFORMATION
  Report Type: 
  Country: None (occurrence: None)
  Receive Date: 20120705
  Receipt Date: 20120703
  Transmission Date: 20120928
  Serious: No
  Sender: FDA-Public Use
  Company Number: US-PFIZER INC-2012109053

PATIENT
  Age: 59 Year
  Sex: Male

DRUGS (3)
  1. SERTRALINE HYDROCHLORIDE [Suspect]
     Dosage: 50 MG, Q AM X 4 DAYS
  2. ZOLOFT [Suspect]
     Dosage: UNK
     Dates: start: 20120411, end: 20120418
  3. SERTRALINE HYDROCHLORIDE [Suspect]
     Dosage: 100 MG, Q AM X 4 DAYS

REACTIONS (2)
  - TREMOR [None]
  - HYPERHIDROSIS [None]
